FAERS Safety Report 5635345-0 (Version None)
Quarter: 2008Q1

REPORT INFORMATION
  Report Type: 
  Country: None (occurrence: None)
  Receive Date: 20080222
  Receipt Date: 20080210
  Transmission Date: 20080703
  Serious: Yes (Other)
  Sender: FDA-Public Use
  Company Number: DE-PFIZER INC-2008013305

PATIENT
  Age: 72 Year
  Sex: Female

DRUGS (6)
  1. LYRICA [Suspect]
     Indication: POST HERPETIC NEURALGIA
     Dosage: DAILY DOSE:600MG-FREQ:BID
     Route: 048
  2. DICLOFENAC SODIUM [Concomitant]
  3. GABAPENTIN [Concomitant]
  4. OMEPRAZOLE [Concomitant]
  5. CARBAMAZEPINE [Concomitant]
  6. AMITRIPTYLINE HCL [Concomitant]

REACTIONS (4)
  - APHASIA [None]
  - BALANCE DISORDER [None]
  - FLUID RETENTION [None]
  - WEIGHT INCREASED [None]
